FAERS Safety Report 6032469-3 (Version None)
Quarter: 2009Q1

REPORT INFORMATION
  Report Type: 
  Country: None (occurrence: None)
  Receive Date: 20090109
  Receipt Date: 20081229
  Transmission Date: 20090719
  Serious: Yes (Other)
  Sender: FDA-Public Use
  Company Number: DE-PFIZER INC-2008093772

PATIENT
  Sex: Female

DRUGS (1)
  1. DEPO-CLINOVIR [Suspect]
     Indication: CONTRACEPTION
     Dosage: 1ST INJECTION
     Route: 030
     Dates: start: 20080731, end: 20080731

REACTIONS (3)
  - ABORTION MISSED [None]
  - DRUG INEFFECTIVE [None]
  - UNINTENDED PREGNANCY [None]
